FAERS Safety Report 5520784-9 (Version None)
Quarter: 2007Q4

REPORT INFORMATION
  Report Type: 
  Country: None (occurrence: None)
  Receive Date: 20071115
  Receipt Date: 20071115
  Transmission Date: 20080405
  Serious: Yes (Hospitalization)
  Sender: FDA-Public Use
  Company Number: None

PATIENT
  Age: 80 Year
  Weight: 46 kg

DRUGS (2)
  1. LEXAPRO [Suspect]
     Indication: DEPRESSION
     Dates: start: 20070301, end: 20071107
  2. QUINIDINE HCL [Suspect]
     Indication: ATRIAL FIBRILLATION

REACTIONS (8)
  - DYSPHAGIA [None]
  - DYSTONIA [None]
  - ILL-DEFINED DISORDER [None]
  - JAW DISORDER [None]
  - MENTAL STATUS CHANGES [None]
  - RESPIRATORY DISORDER [None]
  - TRISMUS [None]
  - VITAL FUNCTIONS ABNORMAL [None]
